FAERS Safety Report 25116681 (Version 1)
Quarter: 2025Q1

REPORT INFORMATION
  Report Type: Spontaneous
  Country: US (occurrence: US)
  Receive Date: 20250325
  Receipt Date: 20250325
  Transmission Date: 20250409
  Serious: No
  Sender: NOVARTIS
  Company Number: US-002147023-NVSC2025US045210

PATIENT
  Sex: Female

DRUGS (1)
  1. MEKINIST [Suspect]
     Active Substance: TRAMETINIB DIMETHYL SULFOXIDE
     Indication: Rheumatoid arthritis
     Dosage: 2 MG, QD
     Route: 048
     Dates: start: 202502

REACTIONS (3)
  - Acne [Unknown]
  - Vision blurred [Unknown]
  - Off label use [Unknown]
